FAERS Safety Report 18731110 (Version 1)
Quarter: 2021Q1

REPORT INFORMATION
  Report Type: Spontaneous
  Country: BE (occurrence: BE)
  Receive Date: 20210112
  Receipt Date: 20210112
  Transmission Date: 20210419
  Serious: Yes (Hospitalization)
  Sender: FDA-Public Use
  Company Number: BE-HIKMA PHARMACEUTICALS USA INC.-BE-H14001-21-00022

PATIENT
  Age: 64 Year
  Sex: Male
  Weight: 93 kg

DRUGS (6)
  1. CETUXIMAB. [Suspect]
     Active Substance: CETUXIMAB
     Indication: COLORECTAL CANCER METASTATIC
     Route: 042
     Dates: start: 20200925
  2. CETUXIMAB. [Suspect]
     Active Substance: CETUXIMAB
     Route: 042
     Dates: start: 20201218
  3. IRINOTECAN [Suspect]
     Active Substance: IRINOTECAN
     Indication: COLORECTAL CANCER METASTATIC
     Route: 042
     Dates: start: 20200925
  4. AVELUMAB [Suspect]
     Active Substance: AVELUMAB
     Route: 042
     Dates: start: 20201218
  5. AVELUMAB [Suspect]
     Active Substance: AVELUMAB
     Indication: COLORECTAL CANCER METASTATIC
     Route: 042
     Dates: start: 20201009
  6. IRINOTECAN [Suspect]
     Active Substance: IRINOTECAN
     Route: 042
     Dates: start: 20201218

REACTIONS (1)
  - Sepsis [Recovered/Resolved]

NARRATIVE: CASE EVENT DATE: 20201218
